FAERS Safety Report 8274842-9 (Version None)
Quarter: 2012Q1

REPORT INFORMATION
  Report Type: 
  Country: None (occurrence: None)
  Receive Date: 20120312
  Receipt Date: 20111122
  Transmission Date: 20120608
  Serious: No
  Sender: FDA-Public Use
  Company Number: 2011SP055376

PATIENT

DRUGS (1)
  1. SAPHRIS [Suspect]
     Indication: BIPOLAR DISORDER
     Dosage: 5 MG;QPM;

REACTIONS (5)
  - ARTHRALGIA [None]
  - UNDERDOSE [None]
  - HYPERSENSITIVITY [None]
  - INAPPROPRIATE SCHEDULE OF DRUG ADMINISTRATION [None]
  - JOINT STIFFNESS [None]
